FAERS Safety Report 7095769-4 (Version None)
Quarter: 2010Q4

REPORT INFORMATION
  Report Type: 
  Country: None (occurrence: None)
  Receive Date: 20101111
  Receipt Date: 20101102
  Transmission Date: 20110411
  Serious: Yes (Hospitalization)
  Sender: FDA-Public Use
  Company Number: FR-ASTRAZENECA-2010SE52276

PATIENT
  Age: 27769 Day
  Sex: Female

DRUGS (6)
  1. CRESTOR [Suspect]
     Indication: DYSLIPIDAEMIA
     Route: 048
     Dates: end: 20101001
  2. IBUPROFEN [Suspect]
     Route: 048
     Dates: start: 20100901, end: 20101008
  3. TARDYFERON [Suspect]
     Route: 048
     Dates: end: 20101001
  4. NASONEX [Concomitant]
  5. EURONAC [Concomitant]
  6. MAXIDROL [Concomitant]
     Indication: CONJUNCTIVITIS

REACTIONS (5)
  - CONDITION AGGRAVATED [None]
  - HAEMOGLOBIN DECREASED [None]
  - HYPERTENSION [None]
  - RENAL CYST [None]
  - RENAL FAILURE ACUTE [None]
